FAERS Safety Report 25579359 (Version 4)
Quarter: 2025Q3

REPORT INFORMATION
  Report Type: Spontaneous
  Country: US (occurrence: US)
  Receive Date: 20250718
  Receipt Date: 20250718
  Transmission Date: 20251020
  Serious: Yes (Other)
  Sender: NOVO NORDISK
  Company Number: US-NOVOPROD-1261587

PATIENT
  Age: 58 Year
  Sex: Female
  Weight: 83.9 kg

DRUGS (31)
  1. WEGOVY [Suspect]
     Active Substance: SEMAGLUTIDE
     Indication: Autoimmune thyroiditis
  2. WEGOVY [Suspect]
     Active Substance: SEMAGLUTIDE
     Indication: Polycystic ovarian syndrome
  3. WEGOVY [Suspect]
     Active Substance: SEMAGLUTIDE
     Indication: Insulin resistance
  4. WEGOVY [Suspect]
     Active Substance: SEMAGLUTIDE
     Indication: Obesity
     Dosage: 0.25 MG, QW
     Route: 058
     Dates: start: 20230501, end: 20230525
  5. WEGOVY [Suspect]
     Active Substance: SEMAGLUTIDE
     Indication: Polycystic ovarian syndrome
  6. WEGOVY [Suspect]
     Active Substance: SEMAGLUTIDE
     Indication: Obesity
     Dosage: 1 MG, QW
     Route: 058
     Dates: start: 20230702, end: 20230719
  7. WEGOVY [Suspect]
     Active Substance: SEMAGLUTIDE
     Indication: Insulin resistance
  8. WEGOVY [Suspect]
     Active Substance: SEMAGLUTIDE
     Indication: Autoimmune thyroiditis
  9. WEGOVY [Suspect]
     Active Substance: SEMAGLUTIDE
     Indication: Autoimmune thyroiditis
  10. WEGOVY [Suspect]
     Active Substance: SEMAGLUTIDE
     Indication: Insulin resistance
  11. WEGOVY [Suspect]
     Active Substance: SEMAGLUTIDE
     Indication: Obesity
     Dosage: 1.7 MG, QW
     Route: 058
     Dates: start: 20230721, end: 20230721
  12. WEGOVY [Suspect]
     Active Substance: SEMAGLUTIDE
     Indication: Polycystic ovarian syndrome
  13. WEGOVY [Suspect]
     Active Substance: SEMAGLUTIDE
     Indication: Autoimmune thyroiditis
  14. WEGOVY [Suspect]
     Active Substance: SEMAGLUTIDE
     Indication: Insulin resistance
  15. WEGOVY [Suspect]
     Active Substance: SEMAGLUTIDE
     Indication: Polycystic ovarian syndrome
  16. WEGOVY [Suspect]
     Active Substance: SEMAGLUTIDE
     Indication: Obesity
     Dosage: 2.4 MG, QW
     Route: 058
     Dates: start: 20230721, end: 20230726
  17. LEVOTHYROXINE [Concomitant]
     Active Substance: LEVOTHYROXINE
     Indication: Hypothyroidism
     Dates: start: 20200805, end: 20230830
  18. PANTOPRAZOLE [Concomitant]
     Active Substance: PANTOPRAZOLE
     Indication: Dyspepsia
     Dates: start: 20230901, end: 20230901
  19. IBUPROFEN [Concomitant]
     Active Substance: IBUPROFEN
     Indication: Pain
  20. IBUPROFEN [Concomitant]
     Active Substance: IBUPROFEN
     Indication: Pyrexia
     Dates: start: 20191001, end: 20230107
  21. ESCITALOPRAM [Concomitant]
     Active Substance: ESCITALOPRAM OXALATE
     Indication: Generalised anxiety disorder
  22. ESCITALOPRAM [Concomitant]
     Active Substance: ESCITALOPRAM OXALATE
     Indication: Depression
     Dates: start: 20220520, end: 20230924
  23. CYCLOBENZAPRINE [Concomitant]
     Active Substance: CYCLOBENZAPRINE
     Indication: Muscle spasms
     Dates: start: 20220624, end: 20230106
  24. FLUTICASONE [Concomitant]
     Active Substance: FLUTICASONE
     Indication: Seasonal allergy
     Dates: start: 20230131, end: 20230630
  25. TILIA FE [Concomitant]
     Active Substance: ETHINYL ESTRADIOL\NORETHINDRONE ACETATE
     Indication: Contraception
     Dates: start: 20230310, end: 20230920
  26. BUSPIRONE HCL [Concomitant]
     Active Substance: BUSPIRONE HYDROCHLORIDE
     Indication: Anxiety
     Dates: start: 20230521, end: 20230923
  27. FAMOTIDINE [Concomitant]
     Active Substance: FAMOTIDINE
     Indication: Dyspepsia
     Dates: start: 20230727, end: 20230827
  28. FAMOTIDINE [Concomitant]
     Active Substance: FAMOTIDINE
     Indication: Gastric ulcer
  29. FAMOTIDINE [Concomitant]
     Active Substance: FAMOTIDINE
     Indication: Gastrooesophageal reflux disease
  30. CALCIUM CARBONATE\MAGNESIUM CARBONATE\MAGNESIUM TRISILICATE [Concomitant]
     Active Substance: CALCIUM CARBONATE\MAGNESIUM CARBONATE\MAGNESIUM TRISILICATE
     Indication: Abdominal discomfort
     Dates: start: 20230701
  31. ALEVE [Concomitant]
     Active Substance: NAPROXEN SODIUM
     Indication: Pain
     Dates: start: 20220622

REACTIONS (2)
  - Impaired gastric emptying [Not Recovered/Not Resolved]
  - Inappropriate schedule of product administration [Unknown]

NARRATIVE: CASE EVENT DATE: 20230701
